FAERS Safety Report 5889024-5 (Version None)
Quarter: 2008Q3

REPORT INFORMATION
  Report Type: 
  Country: None (occurrence: None)
  Receive Date: 20080919
  Receipt Date: 20071016
  Transmission Date: 20090109
  Serious: No
  Sender: FDA-Public Use
  Company Number: US-KINGPHARMUSA00001-K200701339

PATIENT

DRUGS (5)
  1. SONATA [Suspect]
     Indication: SLEEP DISORDER
     Dosage: 10 MG, PRN
     Route: 048
  2. ZOCOR [Interacting]
     Dosage: UNK, QD
     Route: 048
     Dates: end: 20071001
  3. ZOCOR [Interacting]
     Dosage: 80 MG, QD
     Dates: start: 20071001
  4. ASPIRIN [Concomitant]
  5. TOPROL-XL [Concomitant]

REACTIONS (1)
  - DRUG INEFFECTIVE [None]
